FAERS Safety Report 5611845-4 (Version None)
Quarter: 2008Q1

REPORT INFORMATION
  Report Type: 
  Country: None (occurrence: None)
  Receive Date: 20080204
  Receipt Date: 20080124
  Transmission Date: 20080703
  Serious: Yes (Other)
  Sender: FDA-Public Use
  Company Number: CA-JNJFOC-20080104927

PATIENT
  Age: 57 Year
  Sex: Male

DRUGS (4)
  1. TOPAMAX [Suspect]
     Route: 048
  2. TOPAMAX [Suspect]
     Route: 048
  3. TOPAMAX [Suspect]
     Indication: MIGRAINE
     Route: 048
  4. RELPAX [Concomitant]
     Indication: MIGRAINE

REACTIONS (4)
  - DISORIENTATION [None]
  - DYSGEUSIA [None]
  - PARAESTHESIA [None]
  - SOMNOLENCE [None]
